FAERS Safety Report 6712726-5 (Version None)
Quarter: 2010Q2

REPORT INFORMATION
  Report Type: 
  Country: None (occurrence: None)
  Receive Date: 20100505
  Receipt Date: 20100505
  Transmission Date: 20101027
  Serious: No
  Sender: FDA-Public Use
  Company Number: None

PATIENT
  Age: 53 Year
  Sex: Female
  Weight: 181.4388 kg

DRUGS (1)
  1. COMMIT [Suspect]

REACTIONS (2)
  - DRUG DEPENDENCE [None]
  - DRUG TOXICITY [None]
